FAERS Safety Report 5812076-5 (Version None)
Quarter: 2008Q3

REPORT INFORMATION
  Report Type: 
  Country: None (occurrence: None)
  Receive Date: 20080716
  Receipt Date: 20080627
  Transmission Date: 20090109
  Serious: No
  Sender: FDA-Public Use
  Company Number: US-BOEHRINGER INGELHEIM GMBH, GERMANY-2008-BP-10060BP

PATIENT
  Age: 68 Year
  Sex: Female

DRUGS (4)
  1. CATAPRES-TTS-1 [Suspect]
     Indication: DRUG WITHDRAWAL MAINTENANCE THERAPY
     Route: 061
     Dates: start: 20080301
  2. PREMPRO [Concomitant]
  3. ACCUPRIL [Concomitant]
  4. CHOLESTEROL MEDICATION (UNSPECIFIED) [Concomitant]
     Indication: BLOOD CHOLESTEROL

REACTIONS (2)
  - MALAISE [None]
  - NAUSEA [None]
